FAERS Safety Report 15485082 (Version 1)
Quarter: 2018Q4

REPORT INFORMATION
  Report Type: Spontaneous
  Country: US (occurrence: US)
  Receive Date: 20181010
  Receipt Date: 20181010
  Transmission Date: 20190205
  Serious: No
  Sender: FDA-Public Use
  Company Number: US-ROCHE-2113974

PATIENT
  Age: 78 Year
  Sex: Female

DRUGS (2)
  1. ESBRIET [Suspect]
     Active Substance: PIRFENIDONE
     Indication: IDIOPATHIC PULMONARY FIBROSIS
     Route: 048
     Dates: start: 20170824
  2. ESBRIET [Suspect]
     Active Substance: PIRFENIDONE
     Route: 048
     Dates: start: 20180417

REACTIONS (13)
  - Decreased appetite [Unknown]
  - Pruritus [Unknown]
  - Abdominal pain upper [Unknown]
  - Memory impairment [Unknown]
  - Hyperchlorhydria [Unknown]
  - Fatigue [Unknown]
  - Lip dry [Unknown]
  - Hypotension [Unknown]
  - Vomiting [Unknown]
  - Somnolence [Unknown]
  - Dizziness [Unknown]
  - Nausea [Unknown]
  - Weight decreased [Unknown]

NARRATIVE: CASE EVENT DATE: 20180317
